FAERS Safety Report 7815909-6 (Version None)
Quarter: 2011Q4

REPORT INFORMATION
  Report Type: 
  Country: None (occurrence: None)
  Receive Date: 20111014
  Receipt Date: 20111012
  Transmission Date: 20120403
  Serious: No
  Sender: FDA-Public Use
  Company Number: CA-PFIZER INC-2011218558

PATIENT
  Age: 57 Year
  Sex: Male
  Weight: 90.703 kg

DRUGS (3)
  1. CELEBREX [Suspect]
     Indication: ARTHRALGIA
  2. CELEBREX [Suspect]
     Indication: ARTHRITIS
     Dosage: 200 MG, 1X/DAY
     Route: 048
     Dates: start: 20110831, end: 20110914
  3. TYLENOL W/ CODEINE NO. 3 [Concomitant]
     Indication: MYALGIA
     Dosage: UNK, 1-2 PER DAY
     Dates: start: 20110731

REACTIONS (3)
  - MYALGIA [None]
  - HEART RATE INCREASED [None]
  - DYSPNOEA [None]
